FAERS Safety Report 7372786-8 (Version None)
Quarter: 2011Q1

REPORT INFORMATION
  Report Type: 
  Country: None (occurrence: None)
  Receive Date: 20110324
  Receipt Date: 20110302
  Transmission Date: 20110831
  Serious: Yes (Other)
  Sender: FDA-Public Use
  Company Number: US-BAYER-201038158NA

PATIENT
  Sex: Female

DRUGS (15)
  1. PROPRANOLOL [Concomitant]
     Indication: HYPERTENSION
     Route: 048
  2. RELPAX [Concomitant]
     Route: 048
  3. ZYRTEC [Concomitant]
     Route: 048
  4. ADVAIR DISKUS 100/50 [Concomitant]
     Route: 048
  5. LORAZEPAM [Concomitant]
     Route: 048
  6. CYMBALTA [Concomitant]
     Route: 048
  7. YASMIN [Suspect]
     Indication: PRODUCT USED FOR UNKNOWN INDICATION
     Route: 048
     Dates: start: 20060801, end: 20090929
  8. METFORMIN HCL [Concomitant]
     Indication: GLUCOSE TOLERANCE IMPAIRED
     Route: 048
  9. IMITREX [Concomitant]
     Route: 048
  10. NASONEX [Concomitant]
     Route: 048
  11. DEXAMETHASONE [Concomitant]
     Dosage: 0.5 MG, UNK
     Route: 048
  12. ACIPHEX [Concomitant]
     Route: 048
  13. SPIRONOLACTONE [Concomitant]
     Route: 048
  14. ZOLOFT [Concomitant]
     Route: 048
  15. SINGULAIR [Concomitant]
     Route: 048

REACTIONS (1)
  - DEEP VEIN THROMBOSIS [None]
